FAERS Safety Report 6659910-7 (Version None)
Quarter: 2010Q1

REPORT INFORMATION
  Report Type: 
  Country: None (occurrence: None)
  Receive Date: 20100330
  Receipt Date: 20100330
  Transmission Date: 20100710
  Serious: Yes (Life-Threatening, Hospitalization, Other)
  Sender: FDA-Public Use
  Company Number: None

PATIENT
  Age: 64 Year
  Sex: Female
  Weight: 70.3075 kg

DRUGS (1)
  1. COPAXONE [Suspect]
     Indication: MULTIPLE SCLEROSIS
     Dosage: 20 MG ONCE DAILY SQ
     Route: 058
     Dates: start: 20090525, end: 20100216

REACTIONS (5)
  - ABASIA [None]
  - APPARENT LIFE THREATENING EVENT [None]
  - IMMEDIATE POST-INJECTION REACTION [None]
  - RESPIRATORY ARREST [None]
  - SPEECH DISORDER [None]
